FAERS Safety Report 9376073 (Version 1)
Quarter: 2013Q2

REPORT INFORMATION
  Report Type: Spontaneous
  Country: GB (occurrence: GB)
  Receive Date: 20130629
  Receipt Date: 20130629
  Transmission Date: 20140414
  Serious: Yes (Hospitalization, Other)
  Sender: FDA-Public Use
  Company Number: GB-MYLANLABS-2013S1013350

PATIENT
  Sex: Female

DRUGS (7)
  1. TEMAZEPAM [Suspect]
     Indication: PRODUCT USED FOR UNKNOWN INDICATION
     Dates: end: 201207
  2. SELECTIVE BETA-2-ADRENORECEPTOR AGONISTS [Suspect]
     Indication: LOWER RESPIRATORY TRACT INFECTION
     Dates: start: 2010
  3. NARDIL [Suspect]
     Indication: DEPRESSION
     Dates: start: 1988
  4. NUROFEN [Suspect]
     Indication: BURSITIS
  5. PROMAZINE [Suspect]
     Indication: SLEEP DISORDER
     Dates: start: 1991, end: 201207
  6. THYROXINE [Suspect]
     Indication: HYPOTHYROIDISM
     Dates: start: 2002
  7. CETIRIZINE [Concomitant]
     Indication: PRURITUS GENERALISED
     Dates: start: 2010, end: 2012

REACTIONS (14)
  - Lower respiratory tract infection [Unknown]
  - C-reactive protein increased [Unknown]
  - Insomnia [Unknown]
  - Glomerular filtration rate decreased [Not Recovered/Not Resolved]
  - Hypertension [Unknown]
  - Pruritus generalised [Recovered/Resolved]
  - Jessner^s lymphocytic infiltration [Unknown]
  - Antiphospholipid antibodies positive [Unknown]
  - Nodule [Unknown]
  - Sepsis [Unknown]
  - Blood urea increased [Not Recovered/Not Resolved]
  - Hyperhidrosis [Recovered/Resolved]
  - Bursitis [Unknown]
  - Urinary tract infection [Unknown]
